FAERS Safety Report 9001282 (Version 1)
Quarter: 2013Q1

REPORT INFORMATION
  Report Type: Spontaneous
  Country: US (occurrence: US)
  Receive Date: 20130107
  Receipt Date: 20130107
  Transmission Date: 20140127
  Serious: Yes (Death)
  Sender: FDA-Public Use
  Company Number: US-PFIZER INC-2013004495

PATIENT
  Age: 39 Year
  Sex: Male

DRUGS (7)
  1. AMLODIPINE BESILATE [Suspect]
  2. POTASSIUM CHLORIDE [Suspect]
  3. FUROSEMIDE [Suspect]
  4. METOPROLOL [Suspect]
  5. METFORMIN [Suspect]
  6. HYDROCHLOROTHIAZIDE [Suspect]
  7. ACETAMINOPHEN [Suspect]

REACTIONS (1)
  - Completed suicide [Fatal]
